FAERS Safety Report 7247590-1 (Version None)
Quarter: 2011Q1

REPORT INFORMATION
  Report Type: 
  Country: None (occurrence: None)
  Receive Date: 20110127
  Receipt Date: 20110120
  Transmission Date: 20110831
  Serious: Yes (Hospitalization)
  Sender: FDA-Public Use
  Company Number: US-US-EMD SERONO, INC.-234952J09USA

PATIENT
  Sex: Female

DRUGS (4)
  1. OTHER UNSPECIFIED MEDICATIONS [Concomitant]
  2. CAMINOPYRIOINE-SUSTAINED RELEASE [Concomitant]
     Indication: BALANCE DISORDER
     Dates: start: 20091101, end: 20091101
  3. CAMINOPYRIOINE-SUSTAINED RELEASE [Concomitant]
     Indication: MEMORY IMPAIRMENT
  4. REBIF [Suspect]
     Indication: MULTIPLE SCLEROSIS
     Route: 058
     Dates: start: 20090406

REACTIONS (4)
  - TREMOR [None]
  - FEELING COLD [None]
  - DEMENTIA [None]
  - HALLUCINATION [None]
